FAERS Safety Report 7246407-9 (Version None)
Quarter: 2011Q1

REPORT INFORMATION
  Report Type: 
  Country: None (occurrence: None)
  Receive Date: 20110126
  Receipt Date: 20100706
  Transmission Date: 20110831
  Serious: No
  Sender: FDA-Public Use
  Company Number: US-BAUSCH-2010BL003760

PATIENT
  Age: 80 Year
  Sex: Male

DRUGS (1)
  1. ZYLET [Suspect]
     Indication: CONJUNCTIVITIS
     Route: 047
     Dates: start: 20100618, end: 20100620

REACTIONS (2)
  - EYE PAIN [None]
  - OCULAR HYPERAEMIA [None]
